FAERS Safety Report 22126768 (Version 1)
Quarter: 2023Q1

REPORT INFORMATION
  Report Type: Spontaneous
  Country: None (occurrence: US)
  Receive Date: 20230322
  Receipt Date: 20230322
  Transmission Date: 20230418
  Serious: No
  Sender: FDA-Public Use
  Company Number: US-Breckenridge Pharmaceutical, Inc.-2139379

PATIENT
  Sex: Female

DRUGS (1)
  1. DULOXETINE [Suspect]
     Active Substance: DULOXETINE
     Indication: Trigeminal neuralgia
     Route: 048

REACTIONS (3)
  - Pain in jaw [Unknown]
  - Facial pain [Unknown]
  - Therapeutic product ineffective [Unknown]
